FAERS Safety Report 25401384 (Version 3)
Quarter: 2025Q3

REPORT INFORMATION
  Report Type: Spontaneous
  Country: US (occurrence: US)
  Receive Date: 20250605
  Receipt Date: 20250813
  Transmission Date: 20251020
  Serious: No
  Sender: TAKEDA
  Company Number: US-TAKEDA-2025TUS051160

PATIENT
  Age: 39 Year
  Sex: Female
  Weight: 64 kg

DRUGS (2)
  1. VYVANSE [Suspect]
     Active Substance: LISDEXAMFETAMINE DIMESYLATE
     Indication: Attention deficit hyperactivity disorder
  2. VYVANSE [Suspect]
     Active Substance: LISDEXAMFETAMINE DIMESYLATE
     Dosage: 60 MILLIGRAM, QD

REACTIONS (6)
  - Disturbance in attention [Unknown]
  - Poor quality sleep [Unknown]
  - Fatigue [Unknown]
  - Poor quality product administered [Unknown]
  - Product physical issue [Unknown]
  - Pregnancy [Recovered/Resolved]

NARRATIVE: CASE EVENT DATE: 20250509
